FAERS Safety Report 20813057 (Version 1)
Quarter: 2022Q2

REPORT INFORMATION
  Report Type: Report from Study
  Country: US (occurrence: US)
  Receive Date: 20220511
  Receipt Date: 20220511
  Transmission Date: 20220721
  Serious: Yes (Hospitalization, Other)
  Sender: FDA-Public Use
  Company Number: US-SANOFI-00968354

PATIENT
  Age: 70 Year
  Sex: Male

DRUGS (14)
  1. TERIFLUNOMIDE [Suspect]
     Active Substance: TERIFLUNOMIDE
     Indication: Multiple sclerosis
     Dosage: 14 MG, QD
     Route: 048
     Dates: start: 20150101
  2. CARVEDILOL [Concomitant]
     Active Substance: CARVEDILOL
  3. SERTRALINE [Concomitant]
     Active Substance: SERTRALINE HYDROCHLORIDE
  4. CLOPIDOGREL [Concomitant]
     Active Substance: CLOPIDOGREL BISULFATE
  5. TAMSULOSIN [Concomitant]
     Active Substance: TAMSULOSIN
  6. ROSUVASTATIN [Concomitant]
     Active Substance: ROSUVASTATIN
  7. ASPIRIN [Concomitant]
     Active Substance: ASPIRIN
  8. CARBAMAZEPINE [Concomitant]
     Active Substance: CARBAMAZEPINE
  9. SIMVASTATIN [Concomitant]
     Active Substance: SIMVASTATIN
  10. VALSARTAN [Concomitant]
     Active Substance: VALSARTAN
  11. LYRICA [Concomitant]
     Active Substance: PREGABALIN
  12. GABAPENTIN [Concomitant]
     Active Substance: GABAPENTIN
  13. MODAFINIL [Concomitant]
     Active Substance: MODAFINIL
  14. BACLOFEN [Concomitant]
     Active Substance: BACLOFEN

REACTIONS (3)
  - Myocardial infarction [Unknown]
  - Aneurysm [Recovering/Resolving]
  - Vascular graft [Unknown]

NARRATIVE: CASE EVENT DATE: 20210101
